FAERS Safety Report 5779859-1 (Version None)
Quarter: 2008Q2

REPORT INFORMATION
  Report Type: 
  Country: None (occurrence: None)
  Receive Date: 20080620
  Receipt Date: 20080327
  Transmission Date: 20081010
  Serious: No
  Sender: FDA-Public Use
  Company Number: US-BAYER-200818669NA

PATIENT
  Age: 17 Year
  Sex: Female
  Weight: 82 kg

DRUGS (2)
  1. YAZ [Suspect]
     Indication: CONTRACEPTION
     Route: 048
     Dates: start: 20071101
  2. ZOLOFT [Concomitant]

REACTIONS (12)
  - ABDOMINAL DISTENSION [None]
  - ABDOMINAL PAIN [None]
  - DEPRESSION [None]
  - GASTRITIS [None]
  - HEADACHE [None]
  - MENORRHAGIA [None]
  - METRORRHAGIA [None]
  - MIGRAINE [None]
  - NAUSEA [None]
  - PAIN IN EXTREMITY [None]
  - WEIGHT INCREASED [None]
  - WITHDRAWAL BLEEDING IRREGULAR [None]
